FAERS Safety Report 13078329 (Version 2)
Quarter: 2017Q1

REPORT INFORMATION
  Report Type: Spontaneous
  Country: US (occurrence: US)
  Receive Date: 20170102
  Receipt Date: 20170215
  Transmission Date: 20170428
  Serious: No
  Sender: FDA-Public Use
  Company Number: US-ASTRAZENECA-2016SF34699

PATIENT
  Age: 64 Year
  Sex: Female
  Weight: 67.1 kg

DRUGS (5)
  1. ATIVAN [Concomitant]
     Active Substance: LORAZEPAM
     Indication: ANXIETY
     Dosage: 1.0MG AS REQUIRED
     Route: 048
  2. TUDORZA PRESSAIR [Suspect]
     Active Substance: ACLIDINIUM BROMIDE
     Indication: CHRONIC OBSTRUCTIVE PULMONARY DISEASE
     Dosage: ONCE A DAY
     Route: 055
  3. BAYER ASPIRIN [Concomitant]
     Active Substance: ASPIRIN
     Indication: PAIN
     Dosage: AS REQUIRED
     Route: 048
  4. ATENOLOL. [Suspect]
     Active Substance: ATENOLOL
     Indication: HYPERTENSION
     Route: 048
     Dates: start: 2011
  5. TUDORZA PRESSAIR [Suspect]
     Active Substance: ACLIDINIUM BROMIDE
     Indication: CHRONIC OBSTRUCTIVE PULMONARY DISEASE
     Route: 055
     Dates: start: 201610

REACTIONS (6)
  - Drug dose omission [Unknown]
  - Blood pressure increased [Unknown]
  - Incorrect dose administered [Unknown]
  - Dyspnoea [Unknown]
  - Device malfunction [Unknown]
  - Product quality issue [Unknown]

NARRATIVE: CASE EVENT DATE: 2016
